FAERS Safety Report 6247067-6 (Version None)
Quarter: 2009Q2

REPORT INFORMATION
  Report Type: 
  Country: None (occurrence: None)
  Receive Date: 20090624
  Receipt Date: 20090624
  Transmission Date: 20091009
  Serious: Yes (Hospitalization)
  Sender: FDA-Public Use
  Company Number: None

PATIENT
  Age: 93 Year
  Sex: Female
  Weight: 57 kg

DRUGS (10)
  1. NAPROSYN [Suspect]
     Indication: ARTHRITIS
     Dosage: 220MG PO BID
     Route: 048
  2. WARFARIN SODIUM [Suspect]
     Indication: ATRIAL FIBRILLATION
     Dosage: 2MG PO QD
     Route: 048
  3. CITALOPRAM HYDROBROMIDE [Concomitant]
  4. LORATADINE [Concomitant]
  5. DILTIAZEM [Concomitant]
  6. M.V.I. [Concomitant]
  7. OMEPRAZOLE [Concomitant]
  8. TUMS [Concomitant]
  9. ENALAPRIL [Concomitant]
  10. APAP TAB [Concomitant]

REACTIONS (3)
  - DUODENAL ULCER [None]
  - HAEMOGLOBIN DECREASED [None]
  - MELAENA [None]
